FAERS Safety Report 16997108 (Version 1)
Quarter: 2019Q4

REPORT INFORMATION
  Report Type: Spontaneous
  Country: US (occurrence: US)
  Receive Date: 20191017
  Receipt Date: 20191017
  Transmission Date: 20200122
  Serious: Yes (Hospitalization)
  Sender: FDA-Public Use
  Company Number: None

PATIENT
  Age: 75 Year
  Sex: Female

DRUGS (22)
  1. ALIMTA [Concomitant]
     Active Substance: PEMETREXED DISODIUM
  2. GLIPIZIDE. [Concomitant]
     Active Substance: GLIPIZIDE
  3. NORCO [Concomitant]
     Active Substance: ACETAMINOPHEN\HYDROCODONE BITARTRATE
  4. ONDANSETRON [Concomitant]
     Active Substance: ONDANSETRON
  5. PRAVASTATIN. [Concomitant]
     Active Substance: PRAVASTATIN
  6. VITAMIN B12 [Concomitant]
     Active Substance: CYANOCOBALAMIN
  7. DEXAMETHASON [Concomitant]
     Active Substance: DEXAMETHASONE
  8. FISH OIL [Concomitant]
     Active Substance: FISH OIL
  9. FOLIC ACID. [Concomitant]
     Active Substance: FOLIC ACID
  10. PROCHLORPER [Concomitant]
  11. GABAPENTIN. [Concomitant]
     Active Substance: GABAPENTIN
  12. OMEPRAZOLE. [Concomitant]
     Active Substance: OMEPRAZOLE
  13. VITAMIN D3 [Concomitant]
     Active Substance: CHOLECALCIFEROL
  14. ESBRIET [Suspect]
     Active Substance: PIRFENIDONE
     Indication: IDIOPATHIC PULMONARY FIBROSIS
     Dosage: ?          OTHER DOSE: 3 T;?
     Route: 048
     Dates: start: 20190109
  15. ASPIRIN. [Concomitant]
     Active Substance: ASPIRIN
  16. JANUVIA [Concomitant]
     Active Substance: SITAGLIPTIN PHOSPHATE
  17. LISINOPRIL. [Concomitant]
     Active Substance: LISINOPRIL
  18. MIRTAZAPINE. [Concomitant]
     Active Substance: MIRTAZAPINE
  19. CARBOPLATIN. [Concomitant]
     Active Substance: CARBOPLATIN
  20. FLUOXETINE [Concomitant]
     Active Substance: FLUOXETINE HYDROCHLORIDE
  21. METFORMIN [Concomitant]
     Active Substance: METFORMIN HYDROCHLORIDE
  22. VITAMIN B-6 [Concomitant]
     Active Substance: PYRIDOXINE

REACTIONS (1)
  - Pulmonary arterial hypertension [None]

NARRATIVE: CASE EVENT DATE: 201910
